FAERS Safety Report 6220753-X (Version None)
Quarter: 2009Q2

REPORT INFORMATION
  Report Type: 
  Country: None (occurrence: None)
  Receive Date: 20090610
  Receipt Date: 20090528
  Transmission Date: 20091009
  Serious: Yes (Other)
  Sender: FDA-Public Use
  Company Number: FR-CELGENEUS-056-20484-09060410

PATIENT
  Sex: Female
  Weight: 94 kg

DRUGS (3)
  1. INNOHEP [Suspect]
     Indication: DEEP VEIN THROMBOSIS
     Route: 058
  2. INNOHEP [Suspect]
     Route: 058
     Dates: start: 20030705, end: 20030801
  3. LOVENOX [Concomitant]
     Indication: DEEP VEIN THROMBOSIS

REACTIONS (2)
  - DRUG EXPOSURE DURING PREGNANCY [None]
  - THREATENED LABOUR [None]
